FAERS Safety Report 10663710 (Version 1)
Quarter: 2014Q4

REPORT INFORMATION
  Report Type: Spontaneous
  Country: GB (occurrence: GB)
  Receive Date: 20141219
  Receipt Date: 20141219
  Transmission Date: 20150529
  Serious: Yes (Other)
  Sender: FDA-Public Use
  Company Number: GB-ACCORD-027595

PATIENT
  Age: 30 Year
  Sex: Male

DRUGS (1)
  1. ACCORD LEVETIRACETAM [Suspect]
     Active Substance: LEVETIRACETAM
     Indication: EPILEPSY
     Dosage: 7 TABLETS 250 MG LEVETIRACETAM TWICE A DAY.

REACTIONS (1)
  - Sensory disturbance [Recovered/Resolved]
